FAERS Safety Report 9662954 (Version 2)
Quarter: 2013Q4

REPORT INFORMATION
  Report Type: Spontaneous
  Country: US (occurrence: US)
  Receive Date: 20131031
  Receipt Date: 20131031
  Transmission Date: 20140711
  Serious: Yes (Death, Other)
  Sender: FDA-Public Use
  Company Number: US-NAPPMUNDI-USA-2011-0073778

PATIENT
  Age: 14 Year
  Sex: Male

DRUGS (4)
  1. OXYCONTIN (NDA 22-272) [Suspect]
     Indication: DRUG ABUSE
     Dosage: 2 TABLET, SINGLE
  2. MARIJUANA [Suspect]
     Indication: DRUG ABUSE
  3. ALCOHOL [Suspect]
     Indication: DRUG ABUSE
  4. METHORPHAN [Suspect]
     Indication: DRUG ABUSE

REACTIONS (2)
  - Accidental overdose [Fatal]
  - Substance abuse [Unknown]
